FAERS Safety Report 8148258-X (Version None)
Quarter: 2012Q1

REPORT INFORMATION
  Report Type: 
  Country: None (occurrence: None)
  Receive Date: 20120218
  Receipt Date: 20110510
  Transmission Date: 20120608
  Serious: No
  Sender: FDA-Public Use
  Company Number: US-ALLERGAN-1106388US

PATIENT
  Age: 46 Year
  Sex: Male

DRUGS (3)
  1. BOTOX COSMETIC [Suspect]
     Indication: SKIN WRINKLING
     Dosage: 16 UNITS, SINGLE
     Route: 030
     Dates: start: 20110122, end: 20110122
  2. BOTOX COSMETIC [Suspect]
     Dosage: UNK
     Dates: start: 20091201, end: 20091201
  3. BOTOX COSMETIC [Suspect]
     Dosage: UNK
     Dates: start: 20090801, end: 20090801

REACTIONS (5)
  - FACIAL PARESIS [None]
  - PARAESTHESIA [None]
  - PARAESTHESIA ORAL [None]
  - MUSCLE TWITCHING [None]
  - HYPOAESTHESIA [None]
